FAERS Safety Report 10706603 (Version 1)
Quarter: 2015Q1

REPORT INFORMATION
  Report Type: Report from Study
  Country: MX (occurrence: MX)
  Receive Date: 20150113
  Receipt Date: 20150113
  Transmission Date: 20150721
  Serious: Yes (Hospitalization, Other)
  Sender: FDA-Public Use
  Company Number: PHHY2015MX000719

PATIENT
  Age: 79 Year
  Sex: Male

DRUGS (5)
  1. SEEBRI BREEZHALER [Suspect]
     Active Substance: GLYCOPYRROLATE
     Dosage: 1 DF, QD (EVERY 24 HOURS IN THE MORNINGS)
     Route: 065
  2. ONBREZ BREEZHALER [Suspect]
     Active Substance: INDACATEROL
     Dosage: 1 DF, QD  (EVERY 24 HOURS AT NIGHTS)
     Route: 065
  3. ONBREZ BREEZHALER [Suspect]
     Active Substance: INDACATEROL
     Indication: INFECTION PROPHYLAXIS
     Dosage: 1 DF, QD (EVERY 24 HOURS AT NIGHTS)
     Route: 065
  4. SEEBRI BREEZHALER [Suspect]
     Active Substance: GLYCOPYRROLATE
     Indication: INFECTION PROPHYLAXIS
     Dosage: 1 DF, QD (EVERY 24 HOURS IN THE MORNINGS)
     Route: 065
  5. ASPIRIN. [Concomitant]
     Active Substance: ASPIRIN
     Indication: PROPHYLAXIS
     Dosage: 1 DF, UNK
     Route: 065

REACTIONS (19)
  - Diarrhoea [Not Recovered/Not Resolved]
  - Memory impairment [Not Recovered/Not Resolved]
  - Gastric disorder [Not Recovered/Not Resolved]
  - Infection [Not Recovered/Not Resolved]
  - Malaise [Unknown]
  - Headache [Recovered/Resolved]
  - Diverticulitis [Not Recovered/Not Resolved]
  - Loss of consciousness [Not Recovered/Not Resolved]
  - Chills [Not Recovered/Not Resolved]
  - Muscle rigidity [Not Recovered/Not Resolved]
  - Constipation [Not Recovered/Not Resolved]
  - Pain [Not Recovered/Not Resolved]
  - Hypertension [Not Recovered/Not Resolved]
  - Tremor [Not Recovered/Not Resolved]
  - Cardiac disorder [Not Recovered/Not Resolved]
  - Product use issue [Unknown]
  - Seizure [Not Recovered/Not Resolved]
  - Pyrexia [Not Recovered/Not Resolved]
  - Hypoxia [Not Recovered/Not Resolved]

NARRATIVE: CASE EVENT DATE: 201412
